FAERS Safety Report 5492590-5 (Version None)
Quarter: 2007Q4

REPORT INFORMATION
  Report Type: 
  Country: None (occurrence: None)
  Receive Date: 20071022
  Receipt Date: 20071011
  Transmission Date: 20080405
  Serious: Yes (Death)
  Sender: FDA-Public Use
  Company Number: US-GENENTECH-249274

PATIENT
  Sex: Female

DRUGS (1)
  1. BEVACIZUMAB [Suspect]
     Indication: GLIOBLASTOMA MULTIFORME
     Dosage: 15 MG/KG, Q3W
     Route: 042
     Dates: start: 20070622

REACTIONS (1)
  - DEATH [None]
